FAERS Safety Report 10435054 (Version 1)
Quarter: 2014Q2

REPORT INFORMATION
  Report Type: Spontaneous
  Country: US (occurrence: None)
  Receive Date: 20140618
  Receipt Date: 20140618
  Transmission Date: 20141212
  Serious: Yes (Hospitalization)
  Sender: FDA-Public Use
  Company Number: 104443U

PATIENT
  Age: 33 Year
  Sex: Male
  Weight: 56.2 kg

DRUGS (3)
  1. LACOSAMIDE [Suspect]
     Indication: CONVULSION
     Dates: start: 2013
  2. KEPPRA [Suspect]
     Indication: CONVULSION
     Dates: start: 2013
  3. LAMICTAL [Concomitant]

REACTIONS (2)
  - Convulsion [None]
  - Aura [None]
